FAERS Safety Report 19254074 (Version 1)
Quarter: 2021Q2

REPORT INFORMATION
  Report Type: Spontaneous
  Country: CA (occurrence: CA)
  Receive Date: 20210513
  Receipt Date: 20210513
  Transmission Date: 20210717
  Serious: Yes (Other)
  Sender: FDA-Public Use
  Company Number: CA-ACCORD-224855

PATIENT
  Age: 55 Year
  Sex: Female

DRUGS (6)
  1. ERIBULIN [Concomitant]
     Active Substance: ERIBULIN
     Route: 065
  2. TAXOL [Concomitant]
     Active Substance: PACLITAXEL
     Dosage: SOLUTION INTRAVENOUS
     Route: 065
  3. TAMOXIFEN/TAMOXIFEN CITRATE [Suspect]
     Active Substance: TAMOXIFEN CITRATE
     Indication: PRODUCT USED FOR UNKNOWN INDICATION
     Route: 048
  4. GEMZAR [Concomitant]
     Active Substance: GEMCITABINE HYDROCHLORIDE
     Route: 065
  5. ANASTROZOLE. [Suspect]
     Active Substance: ANASTROZOLE
     Indication: BREAST CANCER
     Route: 048
  6. EPIRUBICIN PMS [Concomitant]
     Dosage: SOLUTION INTRAVENOUS
     Route: 065

REACTIONS (3)
  - Breast cancer [Unknown]
  - Malignant neoplasm progression [Unknown]
  - Drug ineffective [Unknown]
